FAERS Safety Report 10497418 (Version 1)
Quarter: 2014Q4

REPORT INFORMATION
  Report Type: Spontaneous
  Country: FR (occurrence: FR)
  Receive Date: 20141006
  Receipt Date: 20141006
  Transmission Date: 20150528
  Serious: Yes (Life-Threatening)
  Sender: FDA-Public Use
  Company Number: FR-JNJFOC-20140926711

PATIENT
  Age: 82 Year
  Sex: Male

DRUGS (13)
  1. XARELTO [Suspect]
     Active Substance: RIVAROXABAN
     Indication: PULMONARY EMBOLISM
     Route: 048
     Dates: start: 201311, end: 20140131
  2. XARELTO [Suspect]
     Active Substance: RIVAROXABAN
     Indication: EMBOLISM VENOUS
     Route: 048
     Dates: start: 201311, end: 20140131
  3. TRIATEC [Suspect]
     Active Substance: RAMIPRIL
     Indication: HYPERTENSION
     Route: 048
     Dates: start: 201311, end: 20140205
  4. EDUCTYL [Concomitant]
     Active Substance: POTASSIUM BITARTRATE\SODIUM BICARBONATE
     Route: 065
  5. ECONAZOLE [Concomitant]
     Active Substance: ECONAZOLE
     Route: 065
  6. AMLODIPINE [Concomitant]
     Active Substance: AMLODIPINE BESYLATE
     Route: 065
  7. MACROGOL [Concomitant]
     Active Substance: POLYETHYLENE GLYCOLS
     Route: 065
  8. EDUCTYL [Concomitant]
     Active Substance: POTASSIUM BITARTRATE\SODIUM BICARBONATE
     Route: 065
  9. AMILORIDE W/HYDROCHLOROTHIAZIDE [Concomitant]
     Active Substance: AMLODIPINE\HYDROCHLOROTHIAZIDE\OLMESARTAN
     Route: 065
  10. INEXIUM [Concomitant]
     Active Substance: ESOMEPRAZOLE
     Route: 065
  11. SERETIDE [Concomitant]
     Active Substance: FLUTICASONE FUROATE\SALMETEROL XINAFOATE
     Route: 065
  12. DIFFU K [Concomitant]
     Active Substance: POTASSIUM CHLORIDE
     Route: 065
  13. DAFALGAN [Concomitant]
     Active Substance: ACETAMINOPHEN
     Route: 065

REACTIONS (2)
  - Dyspnoea [Recovered/Resolved]
  - Palatal oedema [Recovered/Resolved]

NARRATIVE: CASE EVENT DATE: 20131209
